FAERS Safety Report 10273862 (Version 2)
Quarter: 2014Q3

REPORT INFORMATION
  Report Type: Spontaneous
  Country: FR (occurrence: FR)
  Receive Date: 20140702
  Receipt Date: 20140729
  Transmission Date: 20150326
  Serious: Yes (Other)
  Sender: FDA-Public Use
  Company Number: FR-SA-2014SA081555

PATIENT
  Age: 87 Year
  Sex: Female

DRUGS (9)
  1. LOVENOX [Suspect]
     Active Substance: ENOXAPARIN SODIUM
     Indication: PRODUCT USED FOR UNKNOWN INDICATION
     Route: 058
     Dates: start: 20140602, end: 20140602
  2. CARDENSIEL [Concomitant]
     Active Substance: BISOPROLOL FUMARATE
     Dosage: CARDENSIEL 2.5 MG WAS ADMINISTERED AT 1 TABLET PER DAY ON 4-JUN-2014
     Dates: start: 20140604, end: 20140610
  3. GLYCEROL\PARAFFIN [Concomitant]
     Active Substance: GLYCERIN\PARAFFIN
     Dosage: CUTANOUE/DERMAL
  4. CARDENSIEL [Concomitant]
     Active Substance: BISOPROLOL FUMARATE
     Dosage: CARDENSIEL 2.5 MG WAS ADMINISTERED AT 1 TABLET PER DAY ON 4-JUN-2014
     Dates: start: 20140611
  5. PERINDOPRIL [Concomitant]
     Active Substance: PERINDOPRIL
     Route: 048
  6. DAIVOBET [Concomitant]
     Active Substance: BETAMETHASONE DIPROPIONATE\CALCIPOTRIENE
     Dosage: CUTANEOUS/DERMAL
  7. XARELTO [Suspect]
     Active Substance: RIVAROXABAN
     Indication: ATRIAL FIBRILLATION
     Route: 048
     Dates: start: 20140603, end: 20140603
  8. IXPRIM [Concomitant]
     Active Substance: ACETAMINOPHEN\TRAMADOL HYDROCHLORIDE
     Route: 047
  9. ISOPTIN [Concomitant]
     Active Substance: VERAPAMIL HYDROCHLORIDE
     Dosage: PROLONGED RELEASE COATED SCORED TABLET
     Route: 048
     Dates: end: 20140603

REACTIONS (7)
  - Blister [Not Recovered/Not Resolved]
  - Hallucination, auditory [Recovered/Resolved]
  - Agitation [Not Recovered/Not Resolved]
  - Haematoma [Not Recovered/Not Resolved]
  - Hallucination, visual [Recovered/Resolved]
  - Confusional state [Not Recovered/Not Resolved]
  - Off label use [Unknown]

NARRATIVE: CASE EVENT DATE: 20140603
